FAERS Safety Report 9706013 (Version 2)
Quarter: 2013Q4

REPORT INFORMATION
  Report Type: Spontaneous
  Country: US (occurrence: US)
  Receive Date: 20131122
  Receipt Date: 20131126
  Transmission Date: 20140711
  Serious: Yes (Hospitalization)
  Sender: FDA-Public Use
  Company Number: US-B.I. PHARMACEUTICALS,INC./RIDGEFIELD-2013-BI-38016BP

PATIENT
  Age: 73 Year
  Sex: Female

DRUGS (6)
  1. SPIRIVA [Suspect]
     Indication: CHRONIC OBSTRUCTIVE PULMONARY DISEASE
     Dosage: 18 MCG
     Route: 055
     Dates: start: 20130528
  2. SPIRIVA [Suspect]
     Dosage: 18 MCG
     Route: 048
     Dates: start: 20131115, end: 20131115
  3. HCTZ [Concomitant]
     Dosage: 25 MG
     Route: 048
  4. SYMBICORT [Concomitant]
     Dosage: STRENGTH: 80/4.5; DAILY DOSE: 320/18
     Route: 055
  5. OMEPRAZOLE [Concomitant]
     Dosage: 20 MG
     Route: 048
  6. XANAX [Concomitant]
     Dosage: 0.25 MG
     Route: 048

REACTIONS (2)
  - Myocardial infarction [Recovered/Resolved]
  - Incorrect route of drug administration [Recovered/Resolved]
